FAERS Safety Report 12072846 (Version 5)
Quarter: 2016Q2

REPORT INFORMATION
  Report Type: Spontaneous
  Country: US (occurrence: US)
  Receive Date: 20160212
  Receipt Date: 20160622
  Transmission Date: 20160815
  Serious: No
  Sender: FDA-Public Use
  Company Number: US-PFIZER INC-2016075713

PATIENT
  Age: 64 Year
  Sex: Female
  Weight: 110.2 kg

DRUGS (5)
  1. IBRANCE [Suspect]
     Active Substance: PALBOCICLIB
     Indication: BREAST CANCER
     Dosage: 125 MG, CYCLIC (1 CAPSULE DAILY FOR DAY 1-21 OF EVERY 28 DAYS)
     Route: 048
     Dates: start: 20160115
  2. IBRANCE [Suspect]
     Active Substance: PALBOCICLIB
     Dosage: 125 MG, CYCLIC (D1-D21 Q28)
     Route: 048
     Dates: start: 20160115
  3. IBRANCE [Suspect]
     Active Substance: PALBOCICLIB
     Dosage: UNK
  4. IBRANCE [Suspect]
     Active Substance: PALBOCICLIB
     Dosage: 125 MG, CYCLIC (D1-D21 Q28D)
     Route: 048
     Dates: start: 20160115
  5. IBRANCE [Suspect]
     Active Substance: PALBOCICLIB
     Dosage: 125 MG, CYCLIC (D1-D21 Q28D)
     Route: 048
     Dates: start: 20160115

REACTIONS (11)
  - Constipation [Unknown]
  - Throat irritation [Unknown]
  - Nausea [Not Recovered/Not Resolved]
  - Ageusia [Not Recovered/Not Resolved]
  - Dysgeusia [Unknown]
  - Vomiting [Unknown]
  - Neuropathy peripheral [Unknown]
  - Cough [Unknown]
  - Dry mouth [Unknown]
  - Decreased appetite [Not Recovered/Not Resolved]
  - Mucosal inflammation [Unknown]
